FAERS Safety Report 18877779 (Version 1)
Quarter: 2021Q1

REPORT INFORMATION
  Report Type: Spontaneous
  Country: US (occurrence: US)
  Receive Date: 20210211
  Receipt Date: 20210211
  Transmission Date: 20210420
  Serious: Yes (Hospitalization)
  Sender: FDA-Public Use
  Company Number: None

PATIENT
  Age: 63 Year
  Sex: Male
  Weight: 90 kg

DRUGS (10)
  1. LOSARTAN. [Concomitant]
     Active Substance: LOSARTAN
     Dates: start: 20201012
  2. NITROGLYCERIN SUBLINGUAL [Concomitant]
     Active Substance: NITROGLYCERIN
     Dates: start: 20200122
  3. ROSUVASTATIN. [Concomitant]
     Active Substance: ROSUVASTATIN
     Dates: start: 20201221
  4. CASIRIVIMAB?IMDEVIMAB [Suspect]
     Active Substance: CASIRIVIMAB\IMDEVIMAB
     Indication: COVID-19
     Dosage: ?          OTHER FREQUENCY:ONCE;?
     Route: 042
     Dates: start: 20210208, end: 20210208
  5. AZITHROMYCIN ANHYDROUS. [Concomitant]
     Active Substance: AZITHROMYCIN ANHYDROUS
     Dates: start: 20210205
  6. METFORMIN [Concomitant]
     Active Substance: METFORMIN HYDROCHLORIDE
     Dates: start: 20201221
  7. ATENOLOL. [Concomitant]
     Active Substance: ATENOLOL
     Dates: start: 20200506
  8. AMLODIPINE [Concomitant]
     Active Substance: AMLODIPINE BESYLATE
     Dates: start: 20201210
  9. ASPIRIN 81 MG [Concomitant]
     Active Substance: ASPIRIN
  10. AMOXICILLIN. [Concomitant]
     Active Substance: AMOXICILLIN
     Dates: start: 20130917

REACTIONS (5)
  - Pyrexia [None]
  - Acute respiratory failure [None]
  - Chills [None]
  - Anaphylactic reaction [None]
  - Pneumonia [None]

NARRATIVE: CASE EVENT DATE: 20210208
